FAERS Safety Report 24450439 (Version 2)
Quarter: 2024Q4

REPORT INFORMATION
  Report Type: Spontaneous
  Country: US (occurrence: US)
  Receive Date: 20241017
  Receipt Date: 20241022
  Transmission Date: 20250114
  Serious: Yes (Other)
  Sender: DAIICHI
  Company Number: US-DAIICHI SANKYO, INC.-DS-2024-103891-USAA

PATIENT
  Age: 5 Decade
  Sex: Male
  Weight: 61 kg

DRUGS (6)
  1. ENHERTU [Suspect]
     Active Substance: FAM-TRASTUZUMAB DERUXTECAN-NXKI
     Indication: Lung carcinoma cell type unspecified stage IV
     Dosage: 300 MG
     Route: 065
     Dates: start: 20231017, end: 20231017
  2. ENHERTU [Suspect]
     Active Substance: FAM-TRASTUZUMAB DERUXTECAN-NXKI
     Dosage: 80 MG
     Route: 065
     Dates: start: 202312, end: 202312
  3. ENHERTU [Suspect]
     Active Substance: FAM-TRASTUZUMAB DERUXTECAN-NXKI
     Dosage: UNK
     Route: 065
     Dates: start: 20240617, end: 20240617
  4. TAGRISSO [Suspect]
     Active Substance: OSIMERTINIB
     Indication: Lung carcinoma cell type unspecified stage IV
     Dosage: 160 MG
     Route: 048
     Dates: start: 20211020
  5. TAGRISSO [Suspect]
     Active Substance: OSIMERTINIB
     Dosage: 80 MG
     Route: 048
     Dates: start: 20240323
  6. AFATINIB [Concomitant]
     Active Substance: AFATINIB
     Indication: Lung carcinoma cell type unspecified stage IV
     Dosage: 40 MG, QD
     Route: 065
     Dates: start: 20230818

REACTIONS (4)
  - Disease progression [Unknown]
  - Cough [Unknown]
  - Off label use [Not Recovered/Not Resolved]
  - Incorrect dose administered [Unknown]

NARRATIVE: CASE EVENT DATE: 20231017
